FAERS Safety Report 18440233 (Version 1)
Quarter: 2020Q4

REPORT INFORMATION
  Report Type: Spontaneous
  Country: GB (occurrence: GB)
  Receive Date: 20201029
  Receipt Date: 20201029
  Transmission Date: 20210114
  Serious: Yes (Other)
  Sender: FDA-Public Use
  Company Number: GB-TEVA-2020-GB-1841748

PATIENT
  Age: 55 Year
  Sex: Female
  Weight: 88.9 kg

DRUGS (6)
  1. VITAMIN B12 [Concomitant]
     Active Substance: CYANOCOBALAMIN
  2. COD-LIVER OIL [Concomitant]
     Active Substance: COD LIVER OIL
  3. VITAMIN D [Concomitant]
     Active Substance: VITAMIN D NOS
  4. NITROFURANTOIN. [Suspect]
     Active Substance: NITROFURANTOIN
     Indication: URINARY TRACT INFECTION
     Dosage: 4 DOSAGE FORMS DAILY; MORNING AND NIGHT
     Route: 048
     Dates: start: 20200904, end: 20200907
  5. PRIMULA [Concomitant]
  6. IBUPROFEN. [Concomitant]
     Active Substance: IBUPROFEN

REACTIONS (3)
  - Paraesthesia [Not Recovered/Not Resolved]
  - Allodynia [Unknown]
  - Hypoaesthesia [Not Recovered/Not Resolved]

NARRATIVE: CASE EVENT DATE: 20200907
